FAERS Safety Report 13852568 (Version 1)
Quarter: 2017Q3

REPORT INFORMATION
  Report Type: Spontaneous
  Country: US (occurrence: US)
  Receive Date: 20170809
  Receipt Date: 20170809
  Transmission Date: 20171127
  Serious: No
  Sender: FDA-Public Use
  Company Number: US-ROCHE-640326

PATIENT

DRUGS (1)
  1. BONIVA [Suspect]
     Active Substance: IBANDRONATE SODIUM
     Indication: PRODUCT USED FOR UNKNOWN INDICATION
     Route: 065

REACTIONS (7)
  - Pain in extremity [Recovering/Resolving]
  - Musculoskeletal pain [Not Recovered/Not Resolved]
  - Headache [Recovering/Resolving]
  - Arthralgia [Recovering/Resolving]
  - Influenza like illness [Recovering/Resolving]
  - Nausea [Recovering/Resolving]
  - Appetite disorder [Recovering/Resolving]

NARRATIVE: CASE EVENT DATE: 20081225
